FAERS Safety Report 16915204 (Version 2)
Quarter: 2019Q4

REPORT INFORMATION
  Report Type: Spontaneous
  Country: US (occurrence: US)
  Receive Date: 20191014
  Receipt Date: 20191024
  Transmission Date: 20200122
  Serious: Yes (Hospitalization)
  Sender: FDA-Public Use
  Company Number: US-AXIS CLINICALS-2075625

PATIENT
  Age: 29 Year
  Sex: Male
  Weight: 90.35 kg

DRUGS (1)
  1. SITAGLIPTIN TABLETS 100 MG (TEST) OF AUROBINDO PHARMA LIMITED, INDIA A [Suspect]
     Active Substance: SITAGLIPTIN PHOSPHATE
     Indication: DIABETES MELLITUS MANAGEMENT
     Route: 048
     Dates: start: 20191005, end: 20191011

REACTIONS (1)
  - Appendicitis [Recovered/Resolved]

NARRATIVE: CASE EVENT DATE: 20191011
